FAERS Safety Report 22353987 (Version 2)
Quarter: 2023Q2

REPORT INFORMATION
  Report Type: Spontaneous
  Country: US (occurrence: US)
  Receive Date: 20230523
  Receipt Date: 20230621
  Transmission Date: 20230721
  Serious: Yes (Other)
  Sender: FDA-Public Use
  Company Number: US-SA-SAC20230522000800

PATIENT
  Age: 33 Year
  Sex: Male

DRUGS (4)
  1. ALPROLIX [Suspect]
     Active Substance: EFTRENONACOG ALFA
     Dosage: 4788 U
     Route: 065
  2. ALPROLIX [Suspect]
     Active Substance: EFTRENONACOG ALFA
     Dosage: 4788 U
     Route: 065
  3. ALPROLIX [Suspect]
     Active Substance: EFTRENONACOG ALFA
     Dosage: 4788 UNITS (+/-5%), 1X (EXTRA DOSE ADMINISTERED)
     Route: 042
     Dates: start: 20230605, end: 20230605
  4. ALPROLIX [Suspect]
     Active Substance: EFTRENONACOG ALFA
     Dosage: 4788 UNITS (+/-5%), 1X (EXTRA DOSE ADMINISTERED)
     Route: 042
     Dates: start: 20230605, end: 20230605

REACTIONS (2)
  - Haemorrhage [Unknown]
  - Extra dose administered [Unknown]

NARRATIVE: CASE EVENT DATE: 20230514
